FAERS Safety Report 6228085-0 (Version None)
Quarter: 2009Q2

REPORT INFORMATION
  Report Type: 
  Country: None (occurrence: None)
  Receive Date: 20090612
  Receipt Date: 20090605
  Transmission Date: 20091009
  Serious: Yes (Hospitalization)
  Sender: FDA-Public Use
  Company Number: US-WATSON-2009-04205

PATIENT
  Sex: Female

DRUGS (2)
  1. OXYCODONE (WATSON LABORATORIES) [Suspect]
     Indication: ANALGESIA
     Dosage: 5 MG, PRN AF LEAST 10 PER DAY
     Route: 048
  2. OXYCONTIN [Suspect]
     Indication: ANALGESIA
     Dosage: 30-40 MG DAILY, ALONG WITH OXYCODONE 5 MG TABS
     Route: 048

REACTIONS (2)
  - CONDITION AGGRAVATED [None]
  - HYPERAESTHESIA [None]
